FAERS Safety Report 22205135 (Version 1)
Quarter: 2023Q2

REPORT INFORMATION
  Report Type: Spontaneous
  Country: US (occurrence: None)
  Receive Date: 20230413
  Receipt Date: 20230413
  Transmission Date: 20230722
  Serious: Yes (Hospitalization)
  Sender: FDA-Public Use
  Company Number: 2023A081180

PATIENT
  Age: 966 Month
  Sex: Female

DRUGS (1)
  1. PULMICORT FLEXHALER [Suspect]
     Active Substance: BUDESONIDE
     Indication: Asthma
     Dosage: 180 MCG, 2 INHALATIONS 2 TIMES A DAY, SINCE YEARS AGO
     Route: 055

REACTIONS (9)
  - Pancreatic neoplasm [Recovering/Resolving]
  - Renal cancer [Unknown]
  - Pancreatic cyst [Unknown]
  - Sarcoidosis [Unknown]
  - Bronchitis [Unknown]
  - Brain fog [Unknown]
  - Cough [Recovered/Resolved]
  - Dysphonia [Unknown]
  - Intentional product misuse [Unknown]

NARRATIVE: CASE EVENT DATE: 20220901
